FAERS Safety Report 22806800 (Version 3)
Quarter: 2023Q4

REPORT INFORMATION
  Report Type: Spontaneous
  Country: US (occurrence: US)
  Receive Date: 20230810
  Receipt Date: 20231118
  Transmission Date: 20240110
  Serious: Yes (Hospitalization, Other)
  Sender: FDA-Public Use
  Company Number: US-MLMSERVICE-20230724-4427063-1

PATIENT
  Age: 47 Year
  Sex: Female

DRUGS (6)
  1. CLOZAPINE [Suspect]
     Active Substance: CLOZAPINE
     Indication: Schizoaffective disorder
     Dosage: REDUCED TO 50 MG TWICE DAILY ON DAY 50
     Route: 048
  2. CLOZAPINE [Suspect]
     Active Substance: CLOZAPINE
     Indication: Catatonia
     Dosage: TITRATED
     Route: 048
  3. CLOZAPINE [Suspect]
     Active Substance: CLOZAPINE
     Dosage: 75 MG IN THE EVENING OVER A SPAN OF 7 DAYS
     Route: 048
  4. CLOZAPINE [Suspect]
     Active Substance: CLOZAPINE
     Dosage: 50 MILLIGRAM, ONCE A DAY (50 MG IN THE MORNING)
     Route: 048
  5. CLOZAPINE [Suspect]
     Active Substance: CLOZAPINE
     Dosage: REDUCED TO 25 MG IN THE MORNING
     Route: 048
  6. CLOZAPINE [Suspect]
     Active Substance: CLOZAPINE
     Dosage: 50 MG IN THE EVENING ON DAY 60
     Route: 048

REACTIONS (3)
  - Antipsychotic drug level increased [Not Recovered/Not Resolved]
  - Ileus [Recovered/Resolved]
  - Constipation [Recovered/Resolved]
